FAERS Safety Report 8314124-X (Version None)
Quarter: 2012Q2

REPORT INFORMATION
  Report Type: 
  Country: None (occurrence: None)
  Receive Date: 20120426
  Receipt Date: 20120419
  Transmission Date: 20120825
  Serious: Yes (Hospitalization)
  Sender: FDA-Public Use
  Company Number: US-FRI-1000029927

PATIENT
  Sex: Female

DRUGS (1)
  1. DALIRESP [Suspect]

REACTIONS (2)
  - DEHYDRATION [None]
  - DIARRHOEA [None]
